FAERS Safety Report 4944624-1 (Version None)
Quarter: 2006Q1

REPORT INFORMATION
  Report Type: 
  Country: None (occurrence: None)
  Receive Date: 20060315
  Receipt Date: 20060306
  Transmission Date: 20060701
  Serious: Yes (Other)
  Sender: FDA-Public Use
  Company Number: US-JNJFOC-20060301623

PATIENT
  Sex: Female
  Weight: 86.18 kg

DRUGS (7)
  1. REMICADE [Suspect]
     Indication: RHEUMATOID ARTHRITIS
     Route: 042
     Dates: start: 20050316, end: 20051230
  2. METHOTREXATE [Concomitant]
  3. FOLIC ACID [Concomitant]
  4. MOBIC [Concomitant]
  5. PREDNISONE [Concomitant]
  6. PREDNISONE [Concomitant]
  7. WELLBUTRIN [Concomitant]

REACTIONS (4)
  - ATELECTASIS [None]
  - COLLAPSE OF LUNG [None]
  - LUNG NEOPLASM MALIGNANT [None]
  - METASTASES TO LYMPH NODES [None]
